FAERS Safety Report 9086931 (Version 1)
Quarter: 2013Q1

REPORT INFORMATION
  Report Type: Report from Study
  Country: US (occurrence: US)
  Receive Date: 20130131
  Receipt Date: 20130131
  Transmission Date: 20140127
  Serious: No
  Sender: FDA-Public Use
  Company Number: US-ABBOTT-12P-163-0996851-00

PATIENT
  Age: 43 Year
  Sex: Female

DRUGS (4)
  1. HUMIRA [Suspect]
     Indication: RHEUMATOID ARTHRITIS
     Dosage: INITIAL DOSE
     Dates: start: 20121003
  2. LEVOTHYROXINE [Concomitant]
     Indication: THYROID DISORDER
  3. HYDROCODONE [Concomitant]
     Indication: PAIN
     Dosage: 10/325MG
  4. LORAZEPAM [Concomitant]
     Indication: ANXIETY

REACTIONS (6)
  - Drug effect incomplete [Not Recovered/Not Resolved]
  - Muscle spasms [Not Recovered/Not Resolved]
  - Nodule [Not Recovered/Not Resolved]
  - Grip strength decreased [Not Recovered/Not Resolved]
  - Pain [Recovered/Resolved]
  - Drug administration error [Unknown]
